FAERS Safety Report 7621102-2 (Version None)
Quarter: 2011Q3

REPORT INFORMATION
  Report Type: 
  Country: None (occurrence: None)
  Receive Date: 20110719
  Receipt Date: 20110325
  Transmission Date: 20111222
  Serious: No
  Sender: FDA-Public Use
  Company Number: FR-KINGPHARMUSA00001-K201100342

PATIENT
  Sex: Male
  Weight: 104.55 kg

DRUGS (5)
  1. ASPIRIN [Concomitant]
  2. METOPROLOL TARTRATE [Concomitant]
  3. LEVOXYL [Suspect]
     Indication: HYPOTHYROIDISM
     Dosage: UNK
     Route: 048
  4. CLOPIDOGREL [Concomitant]
     Indication: STENT PLACEMENT
     Dosage: 75 MG, QD
     Route: 048
     Dates: start: 20080801
  5. VITAMIN D [Concomitant]
     Indication: VITAMIN D DECREASED

REACTIONS (1)
  - PRURITUS [None]
